FAERS Safety Report 5359531-2 (Version None)
Quarter: 2007Q2

REPORT INFORMATION
  Report Type: 
  Country: None (occurrence: None)
  Receive Date: 20070615
  Receipt Date: 20070604
  Transmission Date: 20071010
  Serious: Yes (Other)
  Sender: FDA-Public Use
  Company Number: BR-PFIZER INC-2007047191

PATIENT
  Age: 30 Year
  Sex: Female

DRUGS (1)
  1. CHAMPIX [Suspect]
     Indication: TOBACCO USER
     Route: 048

REACTIONS (9)
  - DYSPNOEA [None]
  - ILL-DEFINED DISORDER [None]
  - MOOD ALTERED [None]
  - NIGHTMARE [None]
  - PANIC REACTION [None]
  - PHOBIA [None]
  - PSYCHIATRIC SYMPTOM [None]
  - SINUSITIS [None]
  - TACHYCARDIA [None]
